FAERS Safety Report 24704591 (Version 1)
Quarter: 2024Q4

REPORT INFORMATION
  Report Type: Spontaneous
  Country: FR (occurrence: FR)
  Receive Date: 20241206
  Receipt Date: 20241206
  Transmission Date: 20250115
  Serious: Yes (Hospitalization, Other)
  Sender: AUROBINDO
  Company Number: FR-AFSSAPS-TS2024001335

PATIENT
  Age: 65 Year
  Sex: Male
  Weight: 80 kg

DRUGS (4)
  1. AMOXICILLIN [Suspect]
     Active Substance: AMOXICILLIN
     Indication: Pneumonia
     Dosage: 1 GRAM, 3 TIMES A DAY
     Route: 048
     Dates: start: 20240927, end: 20241002
  2. CLAVULANIC ACID [Suspect]
     Active Substance: CLAVULANIC ACID
     Indication: Pneumonia
     Dosage: 125 MILLIGRAM, 3 TIMES A DAY
     Route: 048
     Dates: start: 20240927, end: 20241002
  3. OPDIVO [Suspect]
     Active Substance: NIVOLUMAB
     Indication: Renal cancer
     Dosage: 3 MILLIGRAM/KILOGRAM, EVERY 3 WEEK
     Route: 042
     Dates: start: 20240301, end: 20240607
  4. YERVOY [Suspect]
     Active Substance: IPILIMUMAB
     Indication: Renal cancer
     Dosage: 1 MILLIGRAM/KILOGRAM, EVERY 3 WEEK
     Route: 042
     Dates: start: 20240301, end: 20240607

REACTIONS (3)
  - Cholestasis [Recovering/Resolving]
  - Condition aggravated [Recovering/Resolving]
  - Jaundice [Recovering/Resolving]

NARRATIVE: CASE EVENT DATE: 20241001
